FAERS Safety Report 9479651 (Version 2)
Quarter: 2013Q3

REPORT INFORMATION
  Report Type: Spontaneous
  Country: DE (occurrence: DE)
  Receive Date: 20130827
  Receipt Date: 20130827
  Transmission Date: 20140515
  Serious: Yes (Hospitalization)
  Sender: FDA-Public Use
  Company Number: PHHY2013DE044137

PATIENT
  Age: 71 Year
  Sex: Female

DRUGS (4)
  1. RASILEZ [Suspect]
     Indication: HYPERTENSION
     Dosage: 1 DF (150 MG), BID
     Dates: start: 20130423
  2. RASILEZ [Suspect]
     Dosage: 1 DF (150 MG), QD
     Dates: start: 20130806, end: 20130817
  3. RASILEZ [Suspect]
     Dosage: 1 DF (150 MG), BID
     Dates: start: 20130818
  4. DYTIDE H [Suspect]
     Dosage: 50 MG
     Dates: end: 20130327

REACTIONS (4)
  - Gastritis [Recovered/Resolved]
  - Abdominal pain upper [Recovering/Resolving]
  - Pruritus [Recovered/Resolved]
  - Drug effect incomplete [Unknown]
